FAERS Safety Report 12746681 (Version 1)
Quarter: 2016Q3

REPORT INFORMATION
  Report Type: Other
  Country: US (occurrence: US)
  Receive Date: 20160915
  Receipt Date: 20160915
  Transmission Date: 20161109
  Serious: Yes (Other)
  Sender: FDA-Public Use
  Company Number: US-SILARX PHARMACEUTICALS, INC-1057345

PATIENT
  Age: 32 Month
  Sex: Female

DRUGS (1)
  1. HYDROXYZINE (HYDROXYZINE HYDROCHLORIDE) SOLUTION [Suspect]
     Active Substance: HYDROXYZINE HYDROCHLORIDE

REACTIONS (2)
  - Gluten sensitivity [Unknown]
  - Malaise [None]
